FAERS Safety Report 9522172 (Version 3)
Quarter: 2015Q1

REPORT INFORMATION
  Report Type: Spontaneous
  Country: US (occurrence: US)
  Receive Date: 20130913
  Receipt Date: 20150119
  Transmission Date: 20150721
  Serious: Yes (Hospitalization)
  Sender: FDA-Public Use
  Company Number: US-BAYER-2013-110408

PATIENT
  Age: 36 Year
  Sex: Female
  Weight: 62.59 kg

DRUGS (1)
  1. MIRENA [Suspect]
     Active Substance: LEVONORGESTREL
     Indication: CONTRACEPTION
     Dosage: 20 MCG/24HR, CONT
     Route: 015
     Dates: start: 20050224, end: 20070314

REACTIONS (11)
  - Back pain [None]
  - Pregnancy with contraceptive device [None]
  - Depression [None]
  - Uterine perforation [None]
  - Emotional distress [None]
  - Device issue [None]
  - Pain [None]
  - Injury [None]
  - Chest pain [None]
  - Drug ineffective [None]
  - Abdominal pain [None]

NARRATIVE: CASE EVENT DATE: 2005
